FAERS Safety Report 15613547 (Version 1)
Quarter: 2018Q4

REPORT INFORMATION
  Report Type: Spontaneous
  Country: DE (occurrence: DE)
  Receive Date: 20181113
  Receipt Date: 20181113
  Transmission Date: 20190205
  Serious: Yes (Hospitalization, Other)
  Sender: FDA-Public Use
  Company Number: DE-MYLANLABS-2018M1085823

PATIENT
  Sex: Female
  Weight: 120 kg

DRUGS (3)
  1. MINIRIN [Interacting]
     Active Substance: DESMOPRESSIN ACETATE
     Indication: PRODUCT USED FOR UNKNOWN INDICATION
     Dosage: AM 3. TAG 50MG/D
     Dates: start: 2018
  2. MINIRIN [Interacting]
     Active Substance: DESMOPRESSIN ACETATE
     Dosage: DIE ERSTEN 2 TAGE 100MG/D
     Dates: start: 2018
  3. BISOPROLOL [Suspect]
     Active Substance: BISOPROLOL
     Indication: TACHYCARDIA
     Dosage: 1.25 MG, QD

REACTIONS (2)
  - Bradycardia [Unknown]
  - Drug interaction [Unknown]

NARRATIVE: CASE EVENT DATE: 2018
